FAERS Safety Report 5179007-5 (Version None)
Quarter: 2006Q4

REPORT INFORMATION
  Report Type: 
  Country: None (occurrence: None)
  Receive Date: 20061213
  Receipt Date: 20061213
  Transmission Date: 20070319
  Serious: No
  Sender: FDA-Public Use
  Company Number: None

PATIENT

DRUGS (2)
  1. FEOSOL -FERROUS SULFATE- 65  MG GLAXOSMITHKLINE [Suspect]
  2. FEOSOL -CARBONYL IRON- 45 MG GLAXOSMITHKLINE [Suspect]

REACTIONS (1)
  - MEDICATION ERROR [None]
